FAERS Safety Report 9049147 (Version 1)
Quarter: 2013Q1

REPORT INFORMATION
  Report Type: Spontaneous
  Country: US (occurrence: US)
  Receive Date: 20130205
  Receipt Date: 20130205
  Transmission Date: 20140127
  Serious: No
  Sender: FDA-Public Use
  Company Number: US-PFIZER INC-2013042457

PATIENT
  Sex: Female

DRUGS (3)
  1. FELDENE [Suspect]
     Indication: TEMPOROMANDIBULAR JOINT SYNDROME
     Dosage: UNK
     Dates: start: 1985
  2. FELDENE [Suspect]
     Indication: SPINAL CORD INJURY
  3. FELDENE [Suspect]
     Indication: INTERVERTEBRAL DISC PROTRUSION

REACTIONS (1)
  - Drug ineffective [Unknown]
